FAERS Safety Report 14570522 (Version 5)
Quarter: 2020Q3

REPORT INFORMATION
  Report Type: Spontaneous
  Country: FR (occurrence: FR)
  Receive Date: 20180226
  Receipt Date: 20200921
  Transmission Date: 20201102
  Serious: Yes (Other)
  Sender: FDA-Public Use
  Company Number: FR-SUN PHARMACEUTICAL INDUSTRIES LTD-2018RR-164404

PATIENT
  Age: 60 Year
  Sex: Male

DRUGS (13)
  1. PACLITAXEL. [Suspect]
     Active Substance: PACLITAXEL
     Indication: METASTASES TO LIVER
  2. GEMCITABINE. [Suspect]
     Active Substance: GEMCITABINE
     Indication: METASTASES TO LIVER
     Dosage: THREE WEEKS OF CHEMOTHERAPY AND ONE WEEK BREAK () ; CYCLICAL
     Route: 065
  3. IRINOTECAN [Suspect]
     Active Substance: IRINOTECAN
     Indication: METASTASES TO LIVER
     Dosage: CYCLICAL
     Route: 065
  4. PACLITAXEL. [Suspect]
     Active Substance: PACLITAXEL
     Indication: PANCREATIC CARCINOMA METASTATIC
     Dosage: UNK UNK,QCY ()
     Route: 042
  5. GEMCITABINE. [Suspect]
     Active Substance: GEMCITABINE
     Indication: PANCREATIC CARCINOMA METASTATIC
     Dosage: UNK UNK,QCY ()
     Route: 065
  6. OXALIPLATIN. [Suspect]
     Active Substance: OXALIPLATIN
     Indication: PANCREATIC CARCINOMA METASTATIC
     Dosage: SIX CYCLES RECEIVED () ; CYCLICAL
     Route: 065
  7. 5?FLUOROURACIL [Suspect]
     Active Substance: FLUOROURACIL
     Indication: PANCREATIC CARCINOMA METASTATIC
     Dosage: ()CYCLICAL
     Route: 065
  8. 5?FLUOROURACIL [Suspect]
     Active Substance: FLUOROURACIL
     Indication: METASTASES TO LIVER
     Dosage: ()
     Route: 065
  9. LEUCOVORIN. [Suspect]
     Active Substance: LEUCOVORIN
     Indication: METASTASES TO LIVER
     Dosage: ()
     Route: 065
  10. OXALIPLATIN. [Suspect]
     Active Substance: OXALIPLATIN
     Indication: METASTASES TO LIVER
     Dosage: STOPPED AFTER CYCLE 6 ()
     Route: 065
  11. LEUCOVORIN. [Suspect]
     Active Substance: LEUCOVORIN
     Indication: PANCREATIC CARCINOMA METASTATIC
     Dosage: ()CYCLICAL
     Route: 065
  12. IRINOTECAN [Suspect]
     Active Substance: IRINOTECAN
     Indication: PANCREATIC CARCINOMA METASTATIC
     Dosage: UNK
     Route: 065
  13. PACLITAXEL. [Suspect]
     Active Substance: PACLITAXEL
     Indication: OFF LABEL USE
     Dosage: CYCLICAL
     Route: 065

REACTIONS (8)
  - Asthenia [Unknown]
  - Pancreatic carcinoma metastatic [Recovering/Resolving]
  - Alopecia [Unknown]
  - Product use in unapproved indication [Unknown]
  - Neurotoxicity [Not Recovered/Not Resolved]
  - Treatment failure [Unknown]
  - Off label use [Unknown]
  - Disease progression [Unknown]
